FAERS Safety Report 5118811-6 (Version None)
Quarter: 2006Q4

REPORT INFORMATION
  Report Type: 
  Country: None (occurrence: None)
  Receive Date: 20061002
  Receipt Date: 20050426
  Transmission Date: 20070319
  Serious: Yes (Death, Hospitalization, Other)
  Sender: FDA-Public Use
  Company Number: US-BRISTOL-MYERS SQUIBB COMPANY-12947750

PATIENT
  Age: 76 Year
  Sex: Male

DRUGS (20)
  1. ERBITUX [Suspect]
     Indication: COLORECTAL CANCER METASTATIC
     Dosage: INITIAL TX DATE: 08-NOV-04. PT HAD REC'D 7 CYCLES PRIOR TO EVENT.
     Route: 042
     Dates: start: 20041108, end: 20050329
  2. IRINOTECAN HCL [Suspect]
     Indication: COLORECTAL CANCER METASTATIC
     Dosage: INITIAL TX DATE: 08-NOV-04.  PT HAD REC'D 7 CYCLES PRIOR TO THE EVENT.
     Route: 042
     Dates: start: 20041108, end: 20050329
  3. MORPHINE [Concomitant]
     Dates: start: 20050423, end: 20050424
  4. LEVOFLOXACIN [Concomitant]
     Dates: start: 20050401
  5. OXYCONTIN [Concomitant]
     Indication: ABDOMINAL PAIN
     Dates: start: 20050418
  6. OXYCODONE HCL [Concomitant]
     Indication: PAIN
     Dates: start: 20050418
  7. RANITIDINE [Concomitant]
     Dates: start: 20050418
  8. PROCHLORPERAZINE [Concomitant]
     Dates: start: 20050418
  9. MIRALAX [Concomitant]
     Indication: CONSTIPATION
  10. ALTACE [Concomitant]
  11. TOPROL-XL [Concomitant]
  12. MULTI-VITAMIN [Concomitant]
  13. AMBIEN [Concomitant]
     Indication: SLEEP DISORDER
  14. LIDOCAINE HCL VISCOUS [Concomitant]
     Indication: ORAL CANDIDIASIS
  15. SIMETHICONE [Concomitant]
  16. MARINOL [Concomitant]
  17. HALDOL SOLUTAB [Concomitant]
     Indication: ANOREXIA
     Dates: start: 20050423, end: 20050424
  18. BISACODYL [Concomitant]
     Dates: start: 20050423, end: 20050424
  19. LACTULOSE [Concomitant]
     Route: 048
     Dates: start: 20050423, end: 20050424
  20. SENOKOT [Concomitant]

REACTIONS (6)
  - ASCITES [None]
  - MALIGNANT NEOPLASM PROGRESSION [None]
  - PLEURAL EFFUSION [None]
  - PYREXIA [None]
  - RESPIRATORY FAILURE [None]
  - SMALL INTESTINAL OBSTRUCTION [None]
